FAERS Safety Report 5490237-5 (Version None)
Quarter: 2007Q4

REPORT INFORMATION
  Report Type: 
  Country: None (occurrence: None)
  Receive Date: 20071017
  Receipt Date: 20071009
  Transmission Date: 20080405
  Serious: Yes (Hospitalization, Other)
  Sender: FDA-Public Use
  Company Number: 2007SP010439

PATIENT
  Age: 56 Year
  Sex: Male
  Weight: 88.905 kg

DRUGS (3)
  1. PEG-INTRON [Suspect]
     Indication: HEPATITIS C
     Dosage: ; SC
     Route: 058
     Dates: start: 20070402
  2. RIBAVIRIN [Suspect]
     Indication: HEPATITIS C
     Dosage: 800 MG; QD;
     Dates: start: 20070701
  3. RIBASPHERE [Suspect]
     Indication: HEPATITIS C
     Dosage: ; PO
     Route: 048
     Dates: start: 20070402, end: 20070601

REACTIONS (29)
  - ALVEOLAR OSTEITIS [None]
  - ANAEMIA [None]
  - ARTHRALGIA [None]
  - ASTHENIA [None]
  - BLOOD PRESSURE INCREASED [None]
  - CHEST DISCOMFORT [None]
  - CHEST PAIN [None]
  - DEPRESSION [None]
  - DIARRHOEA [None]
  - DYSPNOEA [None]
  - FALL [None]
  - FATIGUE [None]
  - FRUSTRATION [None]
  - GASTRIC INFECTION [None]
  - HAEMORRHOIDAL HAEMORRHAGE [None]
  - IRRITABILITY [None]
  - JOINT SWELLING [None]
  - LOSS OF CONSCIOUSNESS [None]
  - NAUSEA [None]
  - ORAL INTAKE REDUCED [None]
  - OSTEOMYELITIS [None]
  - PALLOR [None]
  - PRURITUS [None]
  - STRESS [None]
  - TOOTH EXTRACTION [None]
  - TOOTH INFECTION [None]
  - TREMOR [None]
  - VOMITING [None]
  - WEIGHT DECREASED [None]
